FAERS Safety Report 15589191 (Version 2)
Quarter: 2019Q1

REPORT INFORMATION
  Report Type: Spontaneous
  Country: DE (occurrence: DE)
  Receive Date: 20181106
  Receipt Date: 20190111
  Transmission Date: 20190417
  Serious: Yes (Other)
  Sender: FDA-Public Use
  Company Number: DE-ACCORD-091072

PATIENT
  Age: 65 Year
  Sex: Male
  Weight: 57 kg

DRUGS (2)
  1. LEVETIRACETAM. [Suspect]
     Active Substance: LEVETIRACETAM
     Indication: EPILEPSY
     Dosage: 2 WEEKS 250 MG (1-0-1), THEN 500 MG (1-0-1), THEN HALVE THE?MORNING DOSE IN SEPTEMBER 2017
     Route: 048
     Dates: start: 201705
  2. ELIQUIS [Concomitant]
     Active Substance: APIXABAN

REACTIONS (4)
  - Autoimmune thyroiditis [Unknown]
  - Red blood cell count decreased [Unknown]
  - Pancreatitis [Unknown]
  - Memory impairment [Unknown]

NARRATIVE: CASE EVENT DATE: 201706
